FAERS Safety Report 4947308-9 (Version None)
Quarter: 2006Q1

REPORT INFORMATION
  Report Type: 
  Country: None (occurrence: None)
  Receive Date: 20060314
  Receipt Date: 20060306
  Transmission Date: 20060701
  Serious: Yes (Hospitalization)
  Sender: FDA-Public Use
  Company Number: 2006BI002556

PATIENT
  Age: 35 Year
  Sex: Female

DRUGS (1)
  1. AVONEX [Suspect]
     Indication: MULTIPLE SCLEROSIS
     Dosage: 30 UG;QW;IM
     Route: 030
     Dates: start: 20050629

REACTIONS (5)
  - AMNESIA [None]
  - CONDITION AGGRAVATED [None]
  - GALLBLADDER OPERATION [None]
  - MULTIPLE SCLEROSIS [None]
  - UNEVALUABLE EVENT [None]
